FAERS Safety Report 9076427 (Version 1)
Quarter: 2013Q1

REPORT INFORMATION
  Report Type: Report from Study
  Country: US (occurrence: US)
  Receive Date: 20130129
  Receipt Date: 20130129
  Transmission Date: 20140127
  Serious: No
  Sender: FDA-Public Use
  Company Number: US-ABBOTT-12P-163-0947989-00

PATIENT
  Age: 36 Year
  Sex: Female

DRUGS (11)
  1. HUMIRA 40 MG/0.8 ML PEN [Suspect]
     Indication: CROHN^S DISEASE
     Dates: start: 20120414
  2. CLONAZEPAM [Concomitant]
     Indication: ANXIETY
  3. BYSTOLIC [Concomitant]
     Indication: TACHYCARDIA
     Dosage: 5MG DAILY
  4. OMEPRAZOLE [Concomitant]
     Indication: GASTROOESOPHAGEAL REFLUX DISEASE
  5. VITAMIN D3 [Concomitant]
     Indication: OSTEOPENIA
  6. ZENCHENT [Concomitant]
     Indication: ORAL CONTRACEPTION
  7. PULMICORT [Concomitant]
     Indication: PRODUCT USED FOR UNKNOWN INDICATION
     Dosage: 2 PUFFS IN AM AND 2 PUFFS IN PM
  8. XYMOGEN IGG 2,000 D.S. [Concomitant]
     Indication: IMMUNE SYSTEM DISORDER
  9. VARIOUS ALLERGY SHOTS [Concomitant]
     Indication: PRODUCT USED FOR UNKNOWN INDICATION
  10. PROBIOTIC [Concomitant]
     Indication: VITAMIN SUPPLEMENTATION
  11. CALCIUM [Concomitant]
     Indication: PRODUCT USED FOR UNKNOWN INDICATION
     Dosage: ONCE DAILY

REACTIONS (1)
  - Injection site bruising [Recovering/Resolving]
